FAERS Safety Report 6456638-3 (Version None)
Quarter: 2009Q4

REPORT INFORMATION
  Report Type: 
  Country: None (occurrence: None)
  Receive Date: 20091124
  Receipt Date: 20091124
  Transmission Date: 20100525
  Serious: Yes (Hospitalization)
  Sender: FDA-Public Use
  Company Number: None

PATIENT
  Sex: Male
  Weight: 62.4 kg

DRUGS (2)
  1. CISPLATIN [Suspect]
     Dosage: 110 MG
  2. ETOPOSIDE [Suspect]
     Dosage: 411 MG

REACTIONS (4)
  - ASTHENIA [None]
  - DEHYDRATION [None]
  - LETHARGY [None]
  - VOMITING [None]
